FAERS Safety Report 8554377-6 (Version None)
Quarter: 2012Q3

REPORT INFORMATION
  Report Type: 
  Country: None (occurrence: None)
  Receive Date: 20120731
  Receipt Date: 20120726
  Transmission Date: 20120928
  Serious: Yes (Death)
  Sender: FDA-Public Use
  Company Number: US-ROCHE-1041618

PATIENT
  Sex: Female
  Weight: 59.474 kg

DRUGS (10)
  1. XELODA [Suspect]
     Indication: BREAST CANCER
     Dosage: 5 PILLS PER DAY ALTERNATE WITH 6 PILLS FOR 14 DAYS, THEN 1 WEEK REST AND REPEAT AGAIN. DOSE HELD ONE
     Route: 048
     Dates: start: 20120115, end: 20120718
  2. ALLEGRA [Concomitant]
  3. POTASSIUM [Concomitant]
     Indication: BLOOD POTASSIUM DECREASED
  4. PROBIOTIC (UNK INGREDIENTS) [Concomitant]
  5. LOVENOX [Concomitant]
     Dosage: UNIT REPORTED AS G/L
     Route: 058
  6. TORSEMIDE [Concomitant]
     Indication: FLUID RETENTION
     Route: 048
  7. NEXIUM [Concomitant]
  8. DIURETIC (UNK INGREDIENTS) [Concomitant]
  9. VALTREX [Concomitant]
  10. LORAZEPAM [Concomitant]
     Indication: NAUSEA
     Dosage: DOSE 5 TO 1 GRAM, EVERY EVENING.
     Route: 048

REACTIONS (5)
  - SKIN EXFOLIATION [None]
  - HYPERAESTHESIA [None]
  - PAIN IN EXTREMITY [None]
  - PALMAR-PLANTAR ERYTHRODYSAESTHESIA SYNDROME [None]
  - DEATH [None]
